FAERS Safety Report 9262946 (Version 2)
Quarter: 2013Q2

REPORT INFORMATION
  Report Type: Spontaneous
  Country: CA (occurrence: None)
  Receive Date: 20130419
  Receipt Date: 20130423
  Transmission Date: 20140414
  Serious: Yes (Hospitalization, Other)
  Sender: FDA-Public Use
  Company Number: 2013035406

PATIENT
  Age: 87 Year
  Sex: Female

DRUGS (2)
  1. PRIVIGEN [Suspect]
     Indication: IMMUNOGLOBULINS DECREASED
     Dosage: 15 G TOTAL, 5 GM: START AT 18 ML./HR AND I NCREASE UP TO 250 ML/HR?IV, (NOT OTHERWISE SPECIFIED)?
     Route: 042
     Dates: start: 20130313, end: 20130313
  2. PRIVIGEN [Suspect]
     Indication: INFECTION
     Dosage: 15 G TOTAL, 5 GM: START AT 18 ML./HR AND I NCREASE UP TO 250 ML/HR?IV, (NOT OTHERWISE SPECIFIED)?
     Route: 042
     Dates: start: 20130313, end: 20130313

REACTIONS (11)
  - Septic shock [None]
  - Chills [None]
  - Nausea [None]
  - Metabolic acidosis [None]
  - Dyspnoea [None]
  - Ventricular tachycardia [None]
  - Malaise [None]
  - Tachycardia [None]
  - Off label use [None]
  - Oxygen saturation decreased [None]
  - Colitis [None]
